FAERS Safety Report 21627857 (Version 2)
Quarter: 2022Q4

REPORT INFORMATION
  Report Type: Spontaneous
  Country: GR (occurrence: GR)
  Receive Date: 20221122
  Receipt Date: 20221229
  Transmission Date: 20230112
  Serious: Yes (Disabling, Other)
  Sender: FDA-Public Use
  Company Number: GR-LUNDBECK-DKLU3052570

PATIENT
  Age: 33 Year
  Sex: Female
  Weight: 57 kg

DRUGS (2)
  1. ESCITALOPRAM [Suspect]
     Active Substance: ESCITALOPRAM OXALATE
     Indication: Panic attack
     Dosage: 10 MILLIGRAM
     Route: 065
     Dates: start: 20140110, end: 20220222
  2. ESCITALOPRAM [Suspect]
     Active Substance: ESCITALOPRAM OXALATE
     Indication: Obsessive-compulsive disorder
     Dosage: 20 MILLIGRAM
     Route: 065
     Dates: start: 201412, end: 20220222

REACTIONS (35)
  - Cerebral disorder [Unknown]
  - Illusion [Not Recovered/Not Resolved]
  - Migraine with aura [Unknown]
  - Peripheral vascular disorder [Unknown]
  - Amnesia [Not Recovered/Not Resolved]
  - Anhedonia [Not Recovered/Not Resolved]
  - Autoimmune disorder [Not Recovered/Not Resolved]
  - Bedridden [Not Recovered/Not Resolved]
  - Vitreous detachment [Not Recovered/Not Resolved]
  - Nervous system disorder [Unknown]
  - Dysphagia [Not Recovered/Not Resolved]
  - Arthralgia [Unknown]
  - Fatigue [Unknown]
  - Depressive symptom [Not Recovered/Not Resolved]
  - Speech disorder [Not Recovered/Not Resolved]
  - Eye movement disorder [Not Recovered/Not Resolved]
  - Blood pressure abnormal [Not Recovered/Not Resolved]
  - Repetitive speech [Recovered/Resolved]
  - Reflux gastritis [Not Recovered/Not Resolved]
  - Crying [Not Recovered/Not Resolved]
  - Learning disorder [Unknown]
  - Cognitive disorder [Not Recovered/Not Resolved]
  - Condition aggravated [Unknown]
  - Unevaluable event [Not Recovered/Not Resolved]
  - Neuralgia [Not Recovered/Not Resolved]
  - Postural orthostatic tachycardia syndrome [Not Recovered/Not Resolved]
  - Feeling hot [Recovered/Resolved]
  - Streptococcal infection [Not Recovered/Not Resolved]
  - Feeling abnormal [Not Recovered/Not Resolved]
  - Pyrexia [Not Recovered/Not Resolved]
  - Aggression [Not Recovered/Not Resolved]
  - Vertigo [Not Recovered/Not Resolved]
  - Palpitations [Not Recovered/Not Resolved]
  - Visual impairment [Not Recovered/Not Resolved]
  - Intentional product use issue [Unknown]

NARRATIVE: CASE EVENT DATE: 20210101
